FAERS Safety Report 17588969 (Version 1)
Quarter: 2020Q1

REPORT INFORMATION
  Report Type: Spontaneous
  Country: US (occurrence: US)
  Receive Date: 20200327
  Receipt Date: 20200327
  Transmission Date: 20200409
  Serious: Yes (Death, Hospitalization, Other)
  Sender: FDA-Public Use
  Company Number: US-009507513-2003USA009465

PATIENT
  Age: 72 Year
  Sex: Male

DRUGS (4)
  1. REMERON [Suspect]
     Active Substance: MIRTAZAPINE
     Dosage: UNK
     Dates: start: 202003, end: 202003
  2. TRAMADOL HYDROCHLORIDE. [Concomitant]
     Active Substance: TRAMADOL HYDROCHLORIDE
     Dosage: UNK
  3. KEYTRUDA [Suspect]
     Active Substance: PEMBROLIZUMAB
     Indication: BONE CANCER
     Dosage: UNK
     Route: 042
  4. XANAX [Concomitant]
     Active Substance: ALPRAZOLAM

REACTIONS (9)
  - Malaise [Unknown]
  - Product use in unapproved indication [Unknown]
  - Adverse event [Unknown]
  - Decreased appetite [Unknown]
  - Pyrexia [Unknown]
  - Night sweats [Unknown]
  - Fatigue [Unknown]
  - Death [Fatal]
  - Tremor [Unknown]

NARRATIVE: CASE EVENT DATE: 20200308
